FAERS Safety Report 7902456-6 (Version None)
Quarter: 2011Q4

REPORT INFORMATION
  Report Type: 
  Country: None (occurrence: None)
  Receive Date: 20111108
  Receipt Date: 20111101
  Transmission Date: 20120403
  Serious: Yes (Other)
  Sender: FDA-Public Use
  Company Number: US-CELGENEUS-163-20785-11110536

PATIENT
  Sex: Female

DRUGS (3)
  1. THALOMID [Suspect]
     Indication: MULTIPLE MYELOMA
     Dosage: 50 MILLIGRAM
     Route: 048
     Dates: start: 20090701
  2. THALOMID [Suspect]
     Dosage: 100 MILLIGRAM
     Route: 048
     Dates: start: 20110601
  3. THALOMID [Suspect]
     Dosage: 150 MILLIGRAM
     Route: 048
     Dates: start: 20111001, end: 20110101

REACTIONS (2)
  - PARALYSIS [None]
  - NEUROPATHY PERIPHERAL [None]
